FAERS Safety Report 22528414 (Version 1)
Quarter: 2023Q2

REPORT INFORMATION
  Report Type: Spontaneous
  Country: US (occurrence: US)
  Receive Date: 20230607
  Receipt Date: 20230607
  Transmission Date: 20230722
  Serious: Yes (Other)
  Sender: FDA-Public Use
  Company Number: US-NOVITIUMPHARMA-2023USNVP00873

PATIENT
  Age: 65 Year
  Sex: Female

DRUGS (3)
  1. LIDOCAINE HYDROCHLORIDE [Suspect]
     Active Substance: LIDOCAINE HYDROCHLORIDE
     Indication: Cataract operation
     Dosage: 2%
     Route: 042
  2. BUPIVACAINE [Concomitant]
     Active Substance: BUPIVACAINE
     Indication: Cataract operation
     Dosage: 0.75%
     Route: 042
  3. HYALURONIDASE [Concomitant]
     Active Substance: HYALURONIDASE
     Indication: Cataract operation
     Route: 042

REACTIONS (1)
  - Purtscher retinopathy [Recovered/Resolved]
